FAERS Safety Report 8447994 (Version 3)
Quarter: 2012Q4

REPORT INFORMATION
  Report Type: 
  Country: IE (occurrence: IE)
  Receive Date: 20120308
  Receipt Date: 20121113
  Transmission Date: 20130627
  Serious: Yes (Hospitalization)
  Sender: FDA-Public Use
  Company Number: IE-ABBOTT-12P-229-0912246-00

PATIENT
  Sex: Female

DRUGS (4)
  1. HUMIRA [Suspect]
     Indication: CROHN^S DISEASE
     Dosage: 160/80/40
     Dates: start: 20110509
  2. HUMIRA [Suspect]
  3. HUMIRA [Suspect]
     Route: 058
     Dates: start: 20110509
  4. LOSEC [Concomitant]
     Indication: PRODUCT USED FOR UNKNOWN INDICATION

REACTIONS (6)
  - Malaise [Unknown]
  - Decreased appetite [Unknown]
  - Intestinal operation [Unknown]
  - Surgery [Unknown]
  - Crohn^s disease [Unknown]
  - Drug ineffective [Unknown]
